FAERS Safety Report 19957797 (Version 3)
Quarter: 2021Q4

REPORT INFORMATION
  Report Type: Spontaneous
  Country: DE (occurrence: DE)
  Receive Date: 20211015
  Receipt Date: 20211223
  Transmission Date: 20220303
  Serious: Yes (Hospitalization, Other)
  Sender: FDA-Public Use
  Company Number: DE-TEVA-2021-DE-1964716

PATIENT
  Age: 64 Year
  Sex: Female
  Weight: 61 kg

DRUGS (10)
  1. TADALAFIL [Suspect]
     Active Substance: TADALAFIL
     Indication: Pulmonary hypertension
     Dosage: 20 MILLIGRAM DAILY;
     Route: 048
     Dates: start: 201502
  2. ELIQUIS [Suspect]
     Active Substance: APIXABAN
     Indication: Thrombosis prophylaxis
     Dosage: 5 MILLIGRAM DAILY;
     Dates: start: 202108
  3. ELIQUIS [Suspect]
     Active Substance: APIXABAN
     Indication: Pulmonary hypertension
     Dosage: 10 MILLIGRAM DAILY;
     Dates: start: 201502
  4. ELIQUIS [Suspect]
     Active Substance: APIXABAN
     Indication: Haemodilution
  5. FERINJECT [Concomitant]
     Active Substance: FERRIC CARBOXYMALTOSE
  6. TORSEMIDE [Concomitant]
     Active Substance: TORSEMIDE
     Indication: Ascites
     Dosage: 20 MILLIGRAM DAILY;
     Dates: start: 2019
  7. SPIRONOLACTONE [Concomitant]
     Active Substance: SPIRONOLACTONE
     Indication: Ascites
     Dosage: 150 MILLIGRAM DAILY; 100 MG IN THE MORNING, 50 MG IN THE EVENING
     Dates: start: 2019
  8. PANTOPRAZOLE SODIUM [Concomitant]
     Active Substance: PANTOPRAZOLE SODIUM
     Indication: Gastric ulcer
     Dosage: 20 MILLIGRAM DAILY;
     Dates: start: 2019
  9. LEVOTHYROXINE SODIUM [Concomitant]
     Active Substance: LEVOTHYROXINE SODIUM
     Indication: Autoimmune thyroiditis
     Dosage: 75 MICROGRAM DAILY; BEFORE --2008
  10. BUPROPION [Concomitant]
     Active Substance: BUPROPION
     Indication: Depression
     Dosage: 150 MILLIGRAM DAILY;
     Dates: start: 2020

REACTIONS (2)
  - Intestinal haemorrhage [Recovering/Resolving]
  - Blood loss anaemia [Unknown]

NARRATIVE: CASE EVENT DATE: 20200101
